FAERS Safety Report 20126750 (Version 1)
Quarter: 2021Q4

REPORT INFORMATION
  Report Type: Spontaneous
  Country: US (occurrence: None)
  Receive Date: 20211129
  Receipt Date: 20211129
  Transmission Date: 20220304
  Serious: No
  Sender: FDA-Public Use
  Company Number: None

PATIENT
  Age: 80 Year
  Sex: Male

DRUGS (1)
  1. FLUTICASONE FUROATE\SALMETEROL XINAFOATE [Suspect]
     Active Substance: FLUTICASONE FUROATE\SALMETEROL XINAFOATE
     Indication: Chronic obstructive pulmonary disease
     Dosage: FREQUENCY : 1 PUFF TWICE A DAY;?
     Route: 055
     Dates: start: 20210813, end: 20210914

REACTIONS (4)
  - Cough [None]
  - Chest pain [None]
  - Sputum increased [None]
  - Wheezing [None]

NARRATIVE: CASE EVENT DATE: 20210914
